FAERS Safety Report 13177135 (Version 2)
Quarter: 2017Q3

REPORT INFORMATION
  Report Type: Report from Study
  Country: US (occurrence: US)
  Receive Date: 20170201
  Receipt Date: 20170731
  Transmission Date: 20171127
  Serious: No
  Sender: FDA-Public Use
  Company Number: US-EXELIXIS-CABO-16007180

PATIENT
  Sex: Male

DRUGS (12)
  1. POTASSIUM CHLORIDE. [Concomitant]
     Active Substance: POTASSIUM CHLORIDE
  2. ZOFRAN [Concomitant]
     Active Substance: ONDANSETRON HYDROCHLORIDE
  3. ZOCOR [Concomitant]
     Active Substance: SIMVASTATIN
  4. SIMVASTATIN. [Concomitant]
     Active Substance: SIMVASTATIN
  5. CABOMETYX [Suspect]
     Active Substance: CABOZANTINIB S-MALATE
     Indication: MALIGNANT NEOPLASM OF RENAL PELVIS
     Dosage: 60 MG, QD
     Route: 048
     Dates: start: 20160707
  6. ASPIRIN. [Concomitant]
     Active Substance: ASPIRIN
  7. LEVOTHYROXINE. [Concomitant]
     Active Substance: LEVOTHYROXINE
  8. VITAMIN B12 [Concomitant]
     Active Substance: CYANOCOBALAMIN
  9. IBUPROFEN. [Concomitant]
     Active Substance: IBUPROFEN
  10. COREG [Concomitant]
     Active Substance: CARVEDILOL
  11. COMPAZINE [Concomitant]
     Active Substance: PROCHLORPERAZINE MALEATE
  12. LISINOPRIL. [Concomitant]
     Active Substance: LISINOPRIL

REACTIONS (5)
  - Diarrhoea [Unknown]
  - Fatigue [Unknown]
  - Skin tightness [Unknown]
  - Nausea [Unknown]
  - Pain in extremity [Unknown]
